FAERS Safety Report 9297653 (Version 2)
Quarter: 2013Q2

REPORT INFORMATION
  Report Type: Spontaneous
  Country: US (occurrence: US)
  Receive Date: 20130520
  Receipt Date: 20130605
  Transmission Date: 20140414
  Serious: No
  Sender: FDA-Public Use
  Company Number: US-PFIZER INC-2013154377

PATIENT
  Age: 37 Year
  Sex: Female
  Weight: 76.64 kg

DRUGS (1)
  1. LYRICA [Suspect]
     Indication: FIBROMYALGIA
     Dosage: 200 MG, 2X/DAY
     Route: 048
     Dates: end: 201305

REACTIONS (2)
  - Drug withdrawal syndrome [Unknown]
  - Pain [Unknown]
